FAERS Safety Report 7343655-4 (Version None)
Quarter: 2011Q1

REPORT INFORMATION
  Report Type: 
  Country: None (occurrence: None)
  Receive Date: 20110310
  Receipt Date: 20100910
  Transmission Date: 20110831
  Serious: No
  Sender: FDA-Public Use
  Company Number: A0880596A

PATIENT
  Age: 74 Year
  Sex: Female

DRUGS (1)
  1. NICORETTE [Suspect]

REACTIONS (5)
  - ORAL MUCOSAL ERUPTION [None]
  - SWELLING FACE [None]
  - INTENTIONAL DRUG MISUSE [None]
  - OEDEMA MOUTH [None]
  - GLOSSODYNIA [None]
